FAERS Safety Report 8886394 (Version 1)
Quarter: 2012Q4

REPORT INFORMATION
  Report Type: Report from Study
  Country: JP (occurrence: JP)
  Receive Date: 20121105
  Receipt Date: 20121105
  Transmission Date: 20130627
  Serious: Yes (Life-Threatening)
  Sender: FDA-Public Use
  Company Number: JP-CELGENEUS-087-50794-12110326

PATIENT
  Age: 82 Year
  Sex: Male
  Weight: 57 kg

DRUGS (4)
  1. VIDAZA [Suspect]
     Indication: MDS
     Dosage: 37.5 milligram/sq. meter
     Route: 058
     Dates: start: 20120731, end: 20120806
  2. ITRIZOLE [Concomitant]
     Indication: DRUG USE FOR UNKNOWN INDICATION
     Route: 065
     Dates: start: 20120710
  3. BAKTAR [Concomitant]
     Indication: DRUG USE FOR UNKNOWN INDICATION
     Route: 065
     Dates: start: 20120710, end: 20120912
  4. ZOVIRAX [Concomitant]
     Indication: DRUG USE FOR UNKNOWN INDICATION
     Route: 065
     Dates: start: 20120710, end: 20120912

REACTIONS (1)
  - Pancytopenia [Recovered/Resolved]
